FAERS Safety Report 10177310 (Version 1)
Quarter: 2014Q2

REPORT INFORMATION
  Report Type: Spontaneous
  Country: US (occurrence: US)
  Receive Date: 20140516
  Receipt Date: 20140516
  Transmission Date: 20141212
  Serious: Yes (Congenital Anomaly)
  Sender: FDA-Public Use
  Company Number: US-FRI-1000067270

PATIENT
  Age: 0 Day
  Sex: Female

DRUGS (1)
  1. LEXAPRO [Suspect]
     Route: 064
     Dates: end: 20050510

REACTIONS (3)
  - Ventricular septal defect [Unknown]
  - Multiple cardiac defects [Unknown]
  - Congenital anomaly [Unknown]
